FAERS Safety Report 10017080 (Version 2)
Quarter: 2014Q2

REPORT INFORMATION
  Report Type: Spontaneous
  Country: US (occurrence: US)
  Receive Date: 20140318
  Receipt Date: 20140404
  Transmission Date: 20141212
  Serious: Yes (Other)
  Sender: FDA-Public Use
  Company Number: US-BIOGENIDEC-2014BI022884

PATIENT
  Age: 54 Year
  Sex: Male

DRUGS (15)
  1. TECFIDERA [Suspect]
     Indication: MULTIPLE SCLEROSIS
     Dates: start: 201306
  2. TECFIDERA [Suspect]
     Indication: MULTIPLE SCLEROSIS
     Route: 048
  3. TECFIDERA [Suspect]
     Indication: MULTIPLE SCLEROSIS
  4. ISOSORB MONO [Concomitant]
  5. LASIX [Concomitant]
  6. KLOR-CON [Concomitant]
  7. METOPROLOL [Concomitant]
  8. NITROGLYCER [Concomitant]
  9. ASPIRIN [Concomitant]
  10. VICODIN [Concomitant]
  11. DICLOFENAC [Concomitant]
  12. BACLOFEN [Concomitant]
  13. MELOXICAM [Concomitant]
  14. ASA/CAFF/BUT [Concomitant]
  15. ADVAIR [Concomitant]

REACTIONS (9)
  - Fall [Recovered/Resolved]
  - Contusion [Unknown]
  - Mobility decreased [Unknown]
  - Dyspnoea [Unknown]
  - Myocardial infarction [Unknown]
  - Cardiac disorder [Unknown]
  - Depressed mood [Unknown]
  - Decreased interest [Unknown]
  - Gait disturbance [Unknown]
